FAERS Safety Report 9161916 (Version 3)
Quarter: 2013Q4

REPORT INFORMATION
  Report Type: Spontaneous
  Country: US (occurrence: None)
  Receive Date: 20130122
  Receipt Date: 20131003
  Transmission Date: 20140711
  Serious: Yes (Other)
  Sender: FDA-Public Use
  Company Number: GAM-008-13-US

PATIENT
  Age: 32 Year
  Sex: Female

DRUGS (1)
  1. OCTAGAM [Suspect]
     Indication: IMMUNODEFICIENCY COMMON VARIABLE
     Route: 042
     Dates: start: 20121015, end: 20121203

REACTIONS (3)
  - Herpes simplex serology positive [None]
  - Treponema test positive [None]
  - Exposure during pregnancy [None]
